FAERS Safety Report 11581427 (Version 1)
Quarter: 2015Q4

REPORT INFORMATION
  Report Type: Spontaneous
  Country: US (occurrence: US)
  Receive Date: 20151001
  Receipt Date: 20151001
  Transmission Date: 20160304
  Serious: No
  Sender: FDA-Public Use
  Company Number: US-ROCHE-677664

PATIENT
  Sex: Female

DRUGS (4)
  1. COPEGUS [Suspect]
     Active Substance: RIBAVIRIN
     Indication: HEPATITIS C
     Dosage: IN DIVIDED DOSES, START DATE: 2004 OR 2005
     Route: 065
  2. PEGASYS [Suspect]
     Active Substance: PEGINTERFERON ALFA-2A
     Dosage: INTERRUPTED AND REDUCED
     Route: 065
  3. COPEGUS [Suspect]
     Active Substance: RIBAVIRIN
     Dosage: INTERRUPTED AND THAN REDUCED
     Route: 065
  4. PEGASYS [Suspect]
     Active Substance: PEGINTERFERON ALFA-2A
     Indication: HEPATITIS C
     Dosage: FORM:PRE-FILLED SYRINGE, START DATE: 2004 OR 2005
     Route: 065

REACTIONS (7)
  - Hepatitis C [Unknown]
  - Myalgia [Unknown]
  - Arthralgia [Unknown]
  - Blood count abnormal [Unknown]
  - Pain [Unknown]
  - Anxiety [Unknown]
  - Irritability [Unknown]
